FAERS Safety Report 17853658 (Version 1)
Quarter: 2020Q2

REPORT INFORMATION
  Report Type: Spontaneous
  Country: CN (occurrence: CN)
  Receive Date: 20200603
  Receipt Date: 20200603
  Transmission Date: 20200714
  Serious: Yes (Other)
  Sender: FDA-Public Use
  Company Number: CN-B.I. PHARMACEUTICALS,INC./RIDGEFIELD-2020-BI-027171

PATIENT
  Age: 74 Year
  Sex: Male
  Weight: 40 kg

DRUGS (4)
  1. PULMICORT TURBUHALER [Suspect]
     Active Substance: BUDESONIDE
     Indication: INFLAMMATION
     Dosage: DOSAGE FORM: SUSPENSION SOLUTION
     Route: 055
     Dates: start: 20200510, end: 20200513
  2. ATROVENT [Suspect]
     Active Substance: IPRATROPIUM BROMIDE
     Indication: DYSPNOEA
  3. PULMICORT TURBUHALER [Suspect]
     Active Substance: BUDESONIDE
     Indication: DYSPNOEA
  4. ATROVENT [Suspect]
     Active Substance: IPRATROPIUM BROMIDE
     Indication: INFLAMMATION
     Route: 055
     Dates: start: 20200510, end: 20200513

REACTIONS (1)
  - Tachypnoea [Not Recovered/Not Resolved]

NARRATIVE: CASE EVENT DATE: 20200513
